FAERS Safety Report 6755281-6 (Version None)
Quarter: 2010Q2

REPORT INFORMATION
  Report Type: 
  Country: None (occurrence: None)
  Receive Date: 20100602
  Receipt Date: 20100519
  Transmission Date: 20101027
  Serious: Yes (Other)
  Sender: FDA-Public Use
  Company Number: 2010AL003084

PATIENT
  Age: 39 Year
  Sex: Female

DRUGS (3)
  1. LIDOCAINE HCL [Suspect]
     Indication: SURGERY
     Dosage: 2 ML;X1;SQ
     Dates: start: 20100310
  2. ORLISTAT [Concomitant]
  3. ROZEX [Concomitant]

REACTIONS (2)
  - ANXIETY [None]
  - CARBOHYDRATE ANTIGEN 125 INCREASED [None]
